FAERS Safety Report 22984443 (Version 3)
Quarter: 2023Q4

REPORT INFORMATION
  Report Type: Spontaneous
  Country: US (occurrence: US)
  Receive Date: 20230926
  Receipt Date: 20231229
  Transmission Date: 20240110
  Serious: No
  Sender: FDA-Public Use
  Company Number: US-SA-SAC20230919000142

PATIENT
  Age: 36 Year
  Sex: Female

DRUGS (23)
  1. DUPIXENT [Suspect]
     Active Substance: DUPILUMAB
     Indication: Eczema
     Dosage: 600 MG, 1X
     Route: 058
     Dates: start: 20230706, end: 20230706
  2. DUPIXENT [Suspect]
     Active Substance: DUPILUMAB
     Indication: Dermatitis atopic
     Dosage: 300 MG, QOW
     Route: 058
     Dates: start: 202307
  3. DUPIXENT [Suspect]
     Active Substance: DUPILUMAB
     Indication: Neurodermatitis
  4. DUPIXENT [Suspect]
     Active Substance: DUPILUMAB
     Indication: Acne
  5. DUPIXENT [Suspect]
     Active Substance: DUPILUMAB
     Indication: Skin abrasion
  6. EUCRISA [Concomitant]
     Active Substance: CRISABOROLE
     Indication: Rash
     Dosage: 1 G, BID
     Route: 061
     Dates: start: 20231114
  7. TACROLIMUS [Concomitant]
     Active Substance: TACROLIMUS
     Dosage: UNK
  8. TRIAMCINOLONE [Concomitant]
     Active Substance: TRIAMCINOLONE
     Dosage: UNK
  9. ALBUTEROL SULFATE [Concomitant]
     Active Substance: ALBUTEROL SULFATE
     Indication: Dyspnoea
     Dosage: 2 DF (INHALE 2 PUFFS BY MOUTH EVERY 6 HOURS AS NEEDED)
     Route: 055
     Dates: start: 20220606
  10. BACLOFEN [Concomitant]
     Active Substance: BACLOFEN
     Dosage: 1 DF, TID
     Route: 048
     Dates: start: 20230606
  11. BUPROPION [Concomitant]
     Active Substance: BUPROPION
     Dosage: 1 DF, BID (1 TABLET TWICE A DAY FOR 60 DAYS)
     Route: 048
     Dates: start: 20230911
  12. BUPROPION [Concomitant]
     Active Substance: BUPROPION
     Dosage: 1 DF, QD (THEN 1 TABLET ONE TIME A DAY FOR 60 DAYS. (2ND DOSE SHOULD NOT BE TAKEN LATER THAN 4 PM)
     Route: 048
  13. CALCIUM CITRATE [Concomitant]
     Active Substance: CALCIUM CITRATE
     Dosage: 900 MG
     Dates: start: 20180925
  14. ERGOCALCIFEROL [Concomitant]
     Active Substance: ERGOCALCIFEROL
     Dosage: 1 DF, QM
     Route: 048
     Dates: start: 20230103
  15. ESCITALOPRAM [Concomitant]
     Active Substance: ESCITALOPRAM OXALATE
     Dosage: 1 DF, QD
     Dates: start: 20230410
  16. FAMOTIDINE [Concomitant]
     Active Substance: FAMOTIDINE
     Dosage: 1 DF, BID
     Route: 048
     Dates: start: 20230810
  17. FERROUS SULFATE [Concomitant]
     Active Substance: FERROUS SULFATE
     Dosage: 65 MG, QD
     Route: 048
     Dates: start: 20230926
  18. FOLIC ACID [Concomitant]
     Active Substance: FOLIC ACID
     Dosage: 1 DF
     Route: 048
     Dates: start: 20230304
  19. HYDROXYZINE HYDROCHLORIDE [Concomitant]
     Active Substance: HYDROXYZINE HYDROCHLORIDE
     Indication: Anxiety
     Dosage: 1 DF, TID
     Route: 048
     Dates: start: 20230209
  20. KETOCONAZOLE [Concomitant]
     Active Substance: KETOCONAZOLE
     Dosage: UNK (APPLY TO SCALP, LATHER, LET SIT FOR 5-10 MINUTES, TEHN RINSE, APPLY 3 TIMES PER WEEK)
     Dates: start: 20220701
  21. MUPIROCIN [Concomitant]
     Active Substance: MUPIROCIN
     Dosage: UNK
     Dates: start: 20230329
  22. MELATONIN [Concomitant]
     Active Substance: MELATONIN
     Dosage: 1 DF, HS
     Route: 048
     Dates: start: 20230902
  23. TRAZODONE [Concomitant]
     Active Substance: TRAZODONE HYDROCHLORIDE
     Dosage: 1 DF
     Route: 048
     Dates: start: 20230824, end: 20231130

REACTIONS (6)
  - Dry skin [Not Recovered/Not Resolved]
  - Product dose omission issue [Not Recovered/Not Resolved]
  - Scratch [Unknown]
  - Skin abrasion [Unknown]
  - Pruritus [Not Recovered/Not Resolved]
  - Product use in unapproved indication [Unknown]

NARRATIVE: CASE EVENT DATE: 20230706
